FAERS Safety Report 23976328 (Version 1)
Quarter: 2024Q2

REPORT INFORMATION
  Report Type: Spontaneous
  Country: US (occurrence: None)
  Receive Date: 20240613
  Receipt Date: 20240613
  Transmission Date: 20240715
  Serious: Yes (Other)
  Sender: FDA-Public Use
  Company Number: None

PATIENT
  Age: 41 Year
  Sex: Female

DRUGS (1)
  1. BENLYSTA [Suspect]
     Active Substance: BELIMUMAB
     Indication: Overlap syndrome
     Dosage: FREQUENCY : WEEKLY;?

REACTIONS (2)
  - Aneurysm [None]
  - Cerebrovascular accident [None]

NARRATIVE: CASE EVENT DATE: 20240216
